FAERS Safety Report 9479255 (Version 1)
Quarter: 2013Q3

REPORT INFORMATION
  Report Type: Spontaneous
  Country: GB (occurrence: GB)
  Receive Date: 20130827
  Receipt Date: 20130827
  Transmission Date: 20140515
  Serious: Yes (Life-Threatening, Hospitalization, Other)
  Sender: FDA-Public Use
  Company Number: GB-MYLANLABS-2013S1018172

PATIENT
  Age: 58 Year
  Sex: Female

DRUGS (8)
  1. OMEPRAZOLE [Suspect]
     Indication: ASTHMA
     Route: 048
     Dates: start: 20130307, end: 20130512
  2. OMEPRAZOLE [Suspect]
     Indication: COUGH
     Route: 048
     Dates: start: 20130307, end: 20130512
  3. OMEPRAZOLE [Suspect]
     Indication: GASTROOESOPHAGEAL REFLUX DISEASE
     Route: 048
     Dates: start: 20130307, end: 20130512
  4. OMEPRAZOLE [Suspect]
     Indication: ASTHMA
     Route: 048
     Dates: start: 20130513, end: 20130709
  5. OMEPRAZOLE [Suspect]
     Indication: COUGH
     Route: 048
     Dates: start: 20130513, end: 20130709
  6. OMEPRAZOLE [Suspect]
     Indication: GASTROOESOPHAGEAL REFLUX DISEASE
     Route: 048
     Dates: start: 20130513, end: 20130709
  7. BENDROFLUMETHIAZIDE [Concomitant]
     Indication: HYPERTENSION
     Dates: start: 20070117, end: 20130709
  8. PERINDOPRIL ERBUMINE [Concomitant]
     Indication: HYPERTENSION
     Dates: start: 20061204, end: 20130709

REACTIONS (3)
  - Tubulointerstitial nephritis [Recovering/Resolving]
  - Renal failure acute [Unknown]
  - Urinary tract infection [Unknown]
